FAERS Safety Report 25926000 (Version 1)
Quarter: 2025Q4

REPORT INFORMATION
  Report Type: Spontaneous
  Country: US (occurrence: None)
  Receive Date: 20251014
  Receipt Date: 20251014
  Transmission Date: 20260118
  Serious: Yes (Hospitalization)
  Sender: FDA-CTU
  Company Number: None

PATIENT
  Age: 55 Year
  Sex: Female

DRUGS (1)
  1. TECFIDERA [Suspect]
     Active Substance: DIMETHYL FUMARATE
     Indication: Multiple sclerosis
     Dosage: 240MG BID

REACTIONS (6)
  - Basal cell carcinoma [None]
  - Osteonecrosis [None]
  - Arthropathy [None]
  - Activated partial thromboplastin time abnormal [None]
  - Antinuclear antibody [None]
  - Laboratory test abnormal [None]
